FAERS Safety Report 12273114 (Version 4)
Quarter: 2016Q2

REPORT INFORMATION
  Report Type: Spontaneous
  Country: GB (occurrence: GB)
  Receive Date: 20160415
  Receipt Date: 20160517
  Transmission Date: 20160815
  Serious: Yes (Other)
  Sender: FDA-Public Use
  Company Number: GB-TEVA-652329USA

PATIENT
  Age: 38 Year
  Sex: Female

DRUGS (1)
  1. LEVONORGESTREL. [Suspect]
     Active Substance: LEVONORGESTREL
     Indication: POST COITAL CONTRACEPTION
     Route: 065

REACTIONS (3)
  - Menstruation irregular [Unknown]
  - Premenstrual syndrome [Recovered/Resolved]
  - Suicidal ideation [Recovered/Resolved]
